FAERS Safety Report 9381677 (Version 1)
Quarter: 2013Q3

REPORT INFORMATION
  Report Type: Spontaneous
  Country: US (occurrence: US)
  Receive Date: 20130703
  Receipt Date: 20130703
  Transmission Date: 20140515
  Serious: Yes (Disabling)
  Sender: FDA-Public Use
  Company Number: US-JNJFOC-20130618853

PATIENT
  Sex: Female
  Weight: 54.43 kg

DRUGS (3)
  1. XARELTO [Suspect]
     Indication: ANTICOAGULANT THERAPY
     Route: 048
  2. XARELTO [Suspect]
     Indication: ANTICOAGULANT THERAPY
     Route: 048
     Dates: start: 201302
  3. PRADAXA [Suspect]
     Indication: PRODUCT USED FOR UNKNOWN INDICATION
     Route: 065
     Dates: start: 201303

REACTIONS (1)
  - Blood disorder [Recovered/Resolved]
